FAERS Safety Report 8044057 (Version 4)
Quarter: 2018Q4

REPORT INFORMATION
  Report Type: Spontaneous
  Country: JP (occurrence: JP)
  Receive Date: 20110719
  Receipt Date: 20181116
  Transmission Date: 20190205
  Serious: Yes (Death, Hospitalization, Other)
  Sender: FDA-Public Use
  Company Number: PHHY2011JP63612

PATIENT
  Age: 60 Year
  Sex: Female

DRUGS (10)
  1. 5-FU [Concomitant]
     Active Substance: FLUOROURACIL
     Indication: INFLAMMATORY CARCINOMA OF BREAST STAGE III
     Route: 065
  2. DOCETAXEL. [Concomitant]
     Active Substance: DOCETAXEL
     Indication: INFLAMMATORY CARCINOMA OF BREAST STAGE III
     Route: 065
  3. CYCLOPHOSPHAMIDE. [Concomitant]
     Active Substance: CYCLOPHOSPHAMIDE
     Indication: INFLAMMATORY CARCINOMA OF BREAST STAGE III
     Route: 065
  4. CAPECITABINE. [Concomitant]
     Active Substance: CAPECITABINE
     Indication: INFLAMMATORY CARCINOMA OF BREAST STAGE III
     Route: 065
  5. ZOMETA [Suspect]
     Active Substance: ZOLEDRONIC ACID
     Indication: METASTASES TO BONE
     Dosage: UNK
     Route: 041
  6. TS-1 [Concomitant]
     Active Substance: GIMERACIL\OTERACIL\TEGAFUR
     Indication: INFLAMMATORY CARCINOMA OF BREAST STAGE III
     Route: 065
  7. VINORELBINE [Concomitant]
     Active Substance: VINORELBINE\VINORELBINE TARTRATE
     Indication: INFLAMMATORY CARCINOMA OF BREAST STAGE III
     Route: 065
  8. PACLITAXEL. [Concomitant]
     Active Substance: PACLITAXEL
     Indication: INFLAMMATORY CARCINOMA OF BREAST STAGE III
     Route: 065
  9. TRASTUZUMAB. [Concomitant]
     Active Substance: TRASTUZUMAB
     Indication: INFLAMMATORY CARCINOMA OF BREAST STAGE III
     Route: 065
  10. TEGAFUR [Concomitant]
     Active Substance: TEGAFUR
     Indication: INFLAMMATORY CARCINOMA OF BREAST STAGE III
     Route: 065

REACTIONS (8)
  - Neoplasm progression [Fatal]
  - General physical health deterioration [Fatal]
  - Purulence [Unknown]
  - Malignant neoplasm progression [Fatal]
  - White blood cell count decreased [Unknown]
  - Leukopenia [Unknown]
  - Haemorrhage [Unknown]
  - Infected skin ulcer [Unknown]
